FAERS Safety Report 25740046 (Version 1)
Quarter: 2025Q3

REPORT INFORMATION
  Report Type: Spontaneous
  Country: AU (occurrence: AU)
  Receive Date: 20250829
  Receipt Date: 20250829
  Transmission Date: 20251020
  Serious: Yes (Life-Threatening, Hospitalization)
  Sender: MYLAN
  Company Number: AU-MYLANLABS-2025M1073076

PATIENT
  Age: 81 Year
  Sex: Male

DRUGS (1)
  1. AMIODARONE [Suspect]
     Active Substance: AMIODARONE
     Indication: Atrial fibrillation

REACTIONS (6)
  - Hypothyroidism [Recovering/Resolving]
  - Cardiac failure [Unknown]
  - Cardiogenic shock [Unknown]
  - Renal injury [Unknown]
  - Hypertransaminasaemia [Unknown]
  - Blood lactic acid increased [Unknown]
